FAERS Safety Report 15448165 (Version 2)
Quarter: 2018Q4

REPORT INFORMATION
  Report Type: Spontaneous
  Country: US (occurrence: US)
  Receive Date: 20180928
  Receipt Date: 20181115
  Transmission Date: 20190204
  Serious: Yes (Life-Threatening, Hospitalization, Other)
  Sender: FDA-Public Use
  Company Number: US-ALEMBIC PHARMACUETICALS LIMITED-2018SCAL000697

PATIENT

DRUGS (2)
  1. LAMOTRIGINE. [Suspect]
     Active Substance: LAMOTRIGINE
     Indication: PRODUCT USED FOR UNKNOWN INDICATION
     Dosage: 100 MG TABLETS
  2. ESCITALOPRAM [Suspect]
     Active Substance: ESCITALOPRAM OXALATE
     Indication: PRODUCT USED FOR UNKNOWN INDICATION
     Dosage: 20 MG TABLET

REACTIONS (14)
  - Pneumonia aspiration [Recovering/Resolving]
  - Rhabdomyolysis [Recovering/Resolving]
  - Agitation [Recovering/Resolving]
  - Tachycardia [Recovering/Resolving]
  - Muscle rigidity [Recovering/Resolving]
  - Acute respiratory distress syndrome [Recovering/Resolving]
  - Bundle branch block left [Recovered/Resolved]
  - Hyperreflexia [Recovering/Resolving]
  - Clonus [Recovering/Resolving]
  - Overdose [Unknown]
  - Electrocardiogram QRS complex prolonged [Recovered/Resolved]
  - Toxicity to various agents [Recovering/Resolving]
  - Serotonin syndrome [Recovering/Resolving]
  - Hyporesponsive to stimuli [Unknown]
